FAERS Safety Report 9601666 (Version 3)
Quarter: 2013Q4

REPORT INFORMATION
  Report Type: Spontaneous
  Country: JP (occurrence: JP)
  Receive Date: 20131007
  Receipt Date: 20131127
  Transmission Date: 20140711
  Serious: Yes (Life-Threatening, Hospitalization)
  Sender: FDA-Public Use
  Company Number: JP-AMGEN-JPNSP2013069520

PATIENT
  Age: 53 Year
  Sex: Female
  Weight: 56.6 kg

DRUGS (7)
  1. ENBREL [Suspect]
     Indication: RHEUMATOID ARTHRITIS
     Dosage: 25 MG, 2X/WEEK
     Route: 058
     Dates: start: 20110801
  2. ENBREL [Suspect]
     Dosage: 25 MG, WEEKLY
     Route: 058
     Dates: start: 20110922, end: 20121127
  3. ENBREL [Suspect]
     Dosage: 25 MG, EVERY 2WEEKS
     Route: 058
     Dates: start: 20130221, end: 201306
  4. ENBREL [Suspect]
     Dosage: UNK
     Route: 058
     Dates: start: 201306, end: 20130710
  5. METHOTREXATE SODIUM [Suspect]
     Indication: RHEUMATOID ARTHRITIS
     Dosage: UNK
     Route: 048
  6. METOLATE [Suspect]
     Indication: RHEUMATOID ARTHRITIS
     Dosage: 12 MG, WEEKLY
     Route: 048
  7. PREDONINE [Suspect]
     Indication: RHEUMATOID ARTHRITIS
     Dosage: 5 MG, 1X/DAY
     Route: 048

REACTIONS (3)
  - Coma hepatic [Recovering/Resolving]
  - Acute hepatic failure [Recovering/Resolving]
  - Acute hepatitis B [Recovering/Resolving]
